FAERS Safety Report 4768405-7 (Version None)
Quarter: 2005Q3

REPORT INFORMATION
  Report Type: 
  Country: None (occurrence: None)
  Receive Date: 20050914
  Receipt Date: 20050908
  Transmission Date: 20060218
  Serious: Yes (Hospitalization)
  Sender: FDA-Public Use
  Company Number: 200512023DE

PATIENT
  Age: 70 Year
  Sex: Female
  Weight: 65 kg

DRUGS (4)
  1. TAXOTERE [Suspect]
     Indication: BREAST CANCER METASTATIC
     Route: 042
     Dates: start: 20050127, end: 20050427
  2. DEXAMETHASONE [Concomitant]
     Dates: start: 20050127, end: 20050427
  3. CIPROFLOXACIN [Concomitant]
     Dates: start: 20050127, end: 20050427
  4. UNKNOWN DRUG [Concomitant]
     Dates: start: 20050127, end: 20050427

REACTIONS (5)
  - CONSTIPATION [None]
  - DYSPNOEA [None]
  - GENERAL PHYSICAL HEALTH DETERIORATION [None]
  - LYMPHOEDEMA [None]
  - MALNUTRITION [None]
